FAERS Safety Report 8697886 (Version 2)
Quarter: 2013Q4

REPORT INFORMATION
  Report Type: Spontaneous
  Country: US (occurrence: US)
  Receive Date: 20120801
  Receipt Date: 20131105
  Transmission Date: 20140711
  Serious: Yes (Hospitalization, Disabling)
  Sender: FDA-Public Use
  Company Number: US-009507513-1207USA011035

PATIENT
  Sex: Male

DRUGS (3)
  1. ZOCOR [Suspect]
     Dosage: 120 MG, QD
     Route: 048
  2. METOPROLOL RETARD [Concomitant]
  3. PENTALONG [Concomitant]

REACTIONS (3)
  - Hepatic cirrhosis [Unknown]
  - Cholangitis sclerosing [Unknown]
  - Autoimmune hepatitis [Unknown]
